FAERS Safety Report 25475087 (Version 3)
Quarter: 2025Q4

REPORT INFORMATION
  Report Type: Report from Study
  Country: US (occurrence: US)
  Receive Date: 20250624
  Receipt Date: 20251215
  Transmission Date: 20260118
  Serious: Yes (Hospitalization, Other)
  Sender: SANDOZ
  Company Number: US-002147023-NVSC2025US089005

PATIENT
  Age: 65 Year
  Sex: Male
  Weight: 64.5 kg

DRUGS (17)
  1. APIXABAN [Suspect]
     Active Substance: APIXABAN
     Indication: Product used for unknown indication
     Dosage: 5 MG
     Route: 048
     Dates: start: 20250601, end: 20250603
  2. APIXABAN [Suspect]
     Active Substance: APIXABAN
     Indication: Acute myocardial infarction
  3. FLUOROURACIL [Suspect]
     Active Substance: FLUOROURACIL
     Indication: Ductal adenocarcinoma of pancreas
     Dosage: 4300 MG Q14D
     Route: 042
     Dates: start: 20250527, end: 20250529
  4. HEPARIN [Suspect]
     Active Substance: HEPARIN SODIUM
     Indication: Product used for unknown indication
     Dosage: 500 IU (1000 UNITS/ML INJECTION CONCENTRATION) IU
     Route: 065
     Dates: start: 20250530
  5. HEPARIN [Suspect]
     Active Substance: HEPARIN SODIUM
     Dosage: 900 UNITS/HR (25000 UNITS IN 250 ML ? NS INFUSION
     Route: 065
     Dates: start: 20250530
  6. IRINOTECAN [Suspect]
     Active Substance: IRINOTECAN
     Dosage: 220 MG
     Route: 042
     Dates: end: 20250722
  7. IRINOTECAN [Suspect]
     Active Substance: IRINOTECAN
     Dosage: 220 MG
     Route: 042
     Dates: end: 20250805
  8. IRINOTECAN [Suspect]
     Active Substance: IRINOTECAN
     Dosage: 220 MG
     Route: 042
     Dates: end: 20250812
  9. IRINOTECAN [Suspect]
     Active Substance: IRINOTECAN
     Indication: Ductal adenocarcinoma of pancreas
     Dosage: 280 MG Q14D
     Route: 042
     Dates: start: 20250527, end: 20250527
  10. LEUCOVORIN [Suspect]
     Active Substance: LEUCOVORIN\LEUCOVORIN CALCIUM
     Indication: Ductal adenocarcinoma of pancreas
     Dosage: 700 MG Q14D
     Route: 042
     Dates: start: 20250527, end: 20250527
  11. OXALIPLATIN [Suspect]
     Active Substance: OXALIPLATIN
     Dosage: 150 MG
     Route: 042
     Dates: start: 20250722
  12. OXALIPLATIN [Suspect]
     Active Substance: OXALIPLATIN
     Dosage: 150 MG
     Route: 042
     Dates: start: 20250805
  13. OXALIPLATIN [Suspect]
     Active Substance: OXALIPLATIN
     Dosage: 150 MG
     Route: 042
     Dates: start: 20250812
  14. OXALIPLATIN [Suspect]
     Active Substance: OXALIPLATIN
     Indication: Ductal adenocarcinoma of pancreas
     Dosage: 150 MG Q14D
     Route: 042
     Dates: start: 20250527, end: 20250527
  15. ATORVASTATIN [Concomitant]
     Active Substance: ATORVASTATIN
     Indication: Hyperlipidaemia
     Dosage: 40 MG
     Route: 048
     Dates: start: 2005
  16. MAGNESIUM [Concomitant]
     Active Substance: MAGNESIUM
     Indication: Supplementation therapy
     Dosage: 100 MG
     Route: 048
     Dates: start: 202502
  17. RAMIPRIL [Concomitant]
     Active Substance: RAMIPRIL
     Indication: Hypertension
     Dosage: 5 MG
     Route: 048
     Dates: start: 2005

REACTIONS (4)
  - Cardiomyopathy [Recovered/Resolved]
  - Hypotension [Recovered/Resolved]
  - Atrial fibrillation [Recovered/Resolved]
  - Haemorrhoids [Recovered/Resolved]

NARRATIVE: CASE EVENT DATE: 20250530
